FAERS Safety Report 4392631-2 (Version None)
Quarter: 2004Q3

REPORT INFORMATION
  Report Type: 
  Country: None (occurrence: None)
  Receive Date: 20040701
  Receipt Date: 20040621
  Transmission Date: 20050211
  Serious: No
  Sender: FDA-Public Use
  Company Number: A04200400457

PATIENT
  Age: 44 Year
  Sex: Male

DRUGS (6)
  1. ELOXATIN [Suspect]
     Indication: COLON CANCER
     Dosage: 200 MG OTHER (CUMULATIVE DOSE : 200 MG) INTRAVENOUS DRIP   A FEW HOURS
     Route: 041
     Dates: start: 20040513, end: 20040513
  2. ELOXATIN [Suspect]
     Indication: METASTASES TO LIVER
     Dosage: 200 MG OTHER (CUMULATIVE DOSE : 200 MG) INTRAVENOUS DRIP   A FEW HOURS
     Route: 041
     Dates: start: 20040513, end: 20040513
  3. LAXATIVES [Concomitant]
  4. KEVATRIL (GRANISETRON HYDROCHLORIDE) [Concomitant]
  5. DEXAMETHASONE [Concomitant]
  6. LEUCOVORIN (LEUCOVORIN) [Concomitant]

REACTIONS (1)
  - BLINDNESS TRANSIENT [None]
